FAERS Safety Report 8492461 (Version 2)
Quarter: 2013Q1

REPORT INFORMATION
  Report Type: Report from Study
  Country: JP (occurrence: JP)
  Receive Date: 20120403
  Receipt Date: 20130208
  Transmission Date: 20140127
  Serious: Yes (Death, Life-Threatening, Disabling)
  Sender: FDA-Public Use
  Company Number: JP-AMGEN-JPNSP2012019963

PATIENT
  Age: 66 Year
  Sex: Female
  Weight: 50 kg

DRUGS (10)
  1. ROMIPLOSTIM - KHK [Suspect]
     Indication: IDIOPATHIC THROMBOCYTOPENIC PURPURA
     Dosage: 2 MUG/KG, QD
     Route: 058
     Dates: start: 20111101
  2. ROMIPLOSTIM - KHK [Suspect]
     Dosage: 3 MUG/KG, QD
     Route: 058
     Dates: start: 20111108
  3. ROMIPLOSTIM - KHK [Suspect]
     Dosage: 4 MUG/KG, QD
     Route: 058
     Dates: start: 20111115
  4. ROMIPLOSTIM - KHK [Suspect]
     Dosage: 5 MUG/KG, QD
     Route: 058
     Dates: start: 20111125
  5. ROMIPLOSTIM - KHK [Suspect]
     Dosage: 5 MUG/KG, QD
     Route: 058
     Dates: start: 20111221, end: 20111221
  6. PREDNISOLONE [Concomitant]
     Indication: IDIOPATHIC THROMBOCYTOPENIC PURPURA
     Dosage: 5 MG, UNK
     Route: 048
     Dates: start: 20111031, end: 20120122
  7. JANUVIA [Concomitant]
     Indication: DIABETES MELLITUS
     Dosage: UNK
     Route: 048
  8. TAKEPRON [Concomitant]
     Indication: PROPHYLAXIS
     Dosage: UNK
     Route: 048
  9. AMLODIN [Concomitant]
     Indication: HYPERTENSION
     Dosage: UNK
     Route: 048
  10. ALDACTONE A [Concomitant]
     Indication: HYPERTENSION
     Dosage: UNK
     Route: 048

REACTIONS (3)
  - Idiopathic thrombocytopenic purpura [Fatal]
  - Intra-abdominal haemorrhage [Not Recovered/Not Resolved]
  - Anaemia [Not Recovered/Not Resolved]
